FAERS Safety Report 4267453-3 (Version None)
Quarter: 2004Q1

REPORT INFORMATION
  Report Type: 
  Country: None (occurrence: None)
  Receive Date: 20040102
  Receipt Date: 20030922
  Transmission Date: 20041129
  Serious: No
  Sender: FDA-Public Use
  Company Number: BLOC000717

PATIENT
  Sex: Female

DRUGS (3)
  1. MYOBLOC [Suspect]
     Indication: DYSTONIA
     Dosage: INTRAMUSCULAR
     Route: 030
  2. BACLOFEN [Concomitant]
  3. BOTOX (BOTULINUM TOXIN TYPE A) ??/??/???? - [Concomitant]

REACTIONS (1)
  - DYSTONIA [None]
